FAERS Safety Report 7826283-3 (Version None)
Quarter: 2011Q4

REPORT INFORMATION
  Report Type: 
  Country: None (occurrence: None)
  Receive Date: 20111020
  Receipt Date: 20111013
  Transmission Date: 20120403
  Serious: No
  Sender: FDA-Public Use
  Company Number: US-BIOGENIDEC-2011BI036457

PATIENT
  Sex: Male

DRUGS (3)
  1. AVONEX [Concomitant]
     Indication: MULTIPLE SCLEROSIS
     Route: 030
     Dates: start: 20020322
  2. TYSABRI [Suspect]
     Indication: MULTIPLE SCLEROSIS
     Route: 042
     Dates: start: 20110317
  3. SEROQUEL [Concomitant]
     Indication: INSOMNIA

REACTIONS (9)
  - CENTRAL NERVOUS SYSTEM LESION [None]
  - INSOMNIA [None]
  - ASTHENIA [None]
  - HYPOAESTHESIA [None]
  - MUSCULAR WEAKNESS [None]
  - PARAESTHESIA [None]
  - FATIGUE [None]
  - MUSCLE SPASMS [None]
  - BALANCE DISORDER [None]
